FAERS Safety Report 10858252 (Version 2)
Quarter: 2015Q1

REPORT INFORMATION
  Report Type: Spontaneous
  Country: NL (occurrence: NL)
  Receive Date: 20150223
  Receipt Date: 20150224
  Transmission Date: 20150721
  Serious: Yes (Other)
  Sender: FDA-Public Use
  Company Number: NL-MYLANLABS-2015M1004393

PATIENT

DRUGS (5)
  1. IBUPROFEN. [Concomitant]
     Active Substance: IBUPROFEN
     Indication: PRODUCT USED FOR UNKNOWN INDICATION
     Dosage: TABLET ONCE A DAY, ONLY IF NECESSARY (WHEN SHE HAS A SEVERE HEADACHE)
     Route: 048
  2. ETHINYLESTRADIOL/LEVONORGESTREL MYLAN 0,03/0,15 MG, OMHULDE TABLETTEN [Suspect]
     Active Substance: ETHINYL ESTRADIOL\LEVONORGESTREL
     Indication: CONTRACEPTION
     Dosage: UNK, QD (1 TABLET EACH DAY)
     Route: 048
     Dates: start: 20150119
  3. DEPAKINE CHRONO [Concomitant]
     Active Substance: VALPROATE SODIUM
     Indication: EPILEPSY
     Dosage: MORNING: 2X DEPAKINE CHRONO 500, EVENING: 2X DEPAKINE CHRONO 500
     Route: 048
  4. FRISIUM [Concomitant]
     Active Substance: CLOBAZAM
     Indication: EPILEPSY
     Dosage: MORNING: 1X FRISIUM 10MG, EVENING: 2X FRISIUM10MG
     Route: 048
  5. TOPAMAX [Concomitant]
     Active Substance: TOPIRAMATE
     Indication: EPILEPSY
     Dosage: MRNG: 4X TOPAMAX 15MG, EVNG: 5X TOPAMAX 15MG, AFTER EE/LEVO MYLAN, MORNG: 5XTOPAMAX 15MG EVENG: 6X15
     Route: 048

REACTIONS (2)
  - Condition aggravated [Recovering/Resolving]
  - Therapeutic response unexpected [Unknown]
